FAERS Safety Report 24246632 (Version 4)
Quarter: 2024Q4

REPORT INFORMATION
  Report Type: Spontaneous
  Country: JP (occurrence: JP)
  Receive Date: 20240825
  Receipt Date: 20241226
  Transmission Date: 20250115
  Serious: Yes (Other)
  Sender: BRISTOL-MYERS SQUIBB COMPANY
  Company Number: JP-BRISTOL-MYERS SQUIBB COMPANY-2024-132927

PATIENT
  Age: 6 Decade
  Sex: Male

DRUGS (4)
  1. YERVOY [Suspect]
     Active Substance: IPILIMUMAB
     Indication: Lung adenocarcinoma
     Dosage: A TOTAL OF 6 DOSES.
     Route: 041
  2. OPDIVO [Suspect]
     Active Substance: NIVOLUMAB
     Indication: Lung adenocarcinoma
     Dosage: A TOTAL OF 29 DOSES.
  3. CARBOPLATIN [Suspect]
     Active Substance: CARBOPLATIN
     Indication: Lung adenocarcinoma
     Dosage: A TOTAL OF 2 DOSES.
  4. PEMETREXED [Suspect]
     Active Substance: PEMETREXED
     Indication: Lung adenocarcinoma
     Dosage: A TOTAL OF 2 DOSES.

REACTIONS (4)
  - Pulmonary toxicity [Unknown]
  - COVID-19 [Unknown]
  - Pyrexia [Unknown]
  - Adrenal insufficiency [Unknown]
